FAERS Safety Report 6869898-1 (Version None)
Quarter: 2010Q3

REPORT INFORMATION
  Report Type: 
  Country: None (occurrence: None)
  Receive Date: 20100722
  Receipt Date: 20080909
  Transmission Date: 20110219
  Serious: No
  Sender: FDA-Public Use
  Company Number: US-PFIZER INC-2008075867

PATIENT
  Sex: Female
  Weight: 49.9 kg

DRUGS (4)
  1. CHANTIX [Suspect]
     Indication: SMOKING CESSATION THERAPY
     Dates: start: 20080830, end: 20080906
  2. ANALGESICS [Concomitant]
  3. IMMU-G [Concomitant]
  4. KLONOPIN [Concomitant]

REACTIONS (5)
  - HEADACHE [None]
  - MALAISE [None]
  - MIGRAINE [None]
  - SOMNOLENCE [None]
  - UNEVALUABLE EVENT [None]
